FAERS Safety Report 8925381 (Version 1)
Quarter: 2012Q4

REPORT INFORMATION
  Report Type: 
  Country: GB (occurrence: GB)
  Receive Date: 20121126
  Receipt Date: 20121126
  Transmission Date: 20130627
  Serious: Yes (Hospitalization)
  Sender: FDA-Public Use
  Company Number: GB-PFIZER INC-2012293612

PATIENT
  Age: 43 Year
  Sex: Female
  Weight: 96.5 kg

DRUGS (15)
  1. GENOTROPIN [Suspect]
     Dosage: 0.7 mg, 1x/day. 7 injection/week
     Route: 058
     Dates: start: 20030109
  2. ESTRAPAK [Concomitant]
     Indication: LUTEINIZING HORMONE DEFICIENCY
     Dosage: UNK
     Dates: start: 19891201
  3. ESTRAPAK [Concomitant]
     Indication: FOLLICLE-STIMULATING HORMONE DEFICIENCY
  4. ESTRAPAK [Concomitant]
     Indication: OVARIAN DISORDER
  5. ESTRAPAK [Concomitant]
     Indication: HYPOGONADISM FEMALE
  6. FLUCLOXACILLIN [Concomitant]
     Indication: UNSPECIFIED ENTHESOPATHY
     Dosage: UNK
     Dates: start: 19950618
  7. OTOSPORIN [Concomitant]
     Indication: UNSPECIFIED OTITIS MEDIA
     Dosage: UNK
     Dates: start: 19950703
  8. PARACETAMOL [Concomitant]
     Indication: UNSPECIFIED OTITIS MEDIA
     Dosage: UNK
     Dates: start: 19950703
  9. AMOXIL ^BENCARD^ [Concomitant]
     Indication: INFLUENZA
     Dosage: UNK
     Dates: start: 19960920
  10. ERYTHROMYCIN [Concomitant]
     Indication: ACUTE SINUSITIS
     Dosage: UNK
     Dates: start: 19971202
  11. HYDROCORTISONE [Concomitant]
     Indication: ACTH DECREASED
     Dosage: UNK
     Dates: start: 19941129
  12. ORLISTAT [Concomitant]
     Indication: OBESITY
     Dosage: UNK
     Dates: start: 20020211
  13. THYROXINE [Concomitant]
     Indication: HYPOTHYROIDISM
     Dosage: UNK
     Dates: start: 20030901
  14. DESMOPRESSIN [Concomitant]
     Indication: ADH DECREASED
     Dosage: UNK
     Dates: start: 20030109
  15. FLUOXETINE [Concomitant]
     Indication: DEPRESSION
     Dosage: UNK
     Dates: start: 19950302

REACTIONS (1)
  - Sinusitis [Unknown]
